FAERS Safety Report 24286104 (Version 1)
Quarter: 2024Q3

REPORT INFORMATION
  Report Type: Spontaneous
  Country: CN (occurrence: CN)
  Receive Date: 20240905
  Receipt Date: 20240905
  Transmission Date: 20241017
  Serious: Yes (Hospitalization)
  Sender: EISAI
  Company Number: CN-Eisai-EC-2024-173308

PATIENT
  Age: 63 Year
  Sex: Female

DRUGS (5)
  1. LENVATINIB [Suspect]
     Active Substance: LENVATINIB
     Indication: Hepatocellular carcinoma
     Route: 048
     Dates: start: 20210729, end: 2023
  2. LENVATINIB [Suspect]
     Active Substance: LENVATINIB
     Dosage: FOR 2-3 WEEKS FOLLOWED BY 1-WEEK BREAK
     Route: 048
     Dates: start: 2023
  3. CARILIZUMAB [Concomitant]
     Indication: Hepatocellular carcinoma
     Route: 013
     Dates: start: 20210729
  4. TIROFIBAN [Concomitant]
     Active Substance: TIROFIBAN
     Indication: Hyperpyrexia
     Dates: start: 2023, end: 2023
  5. TIROFIBAN [Concomitant]
     Active Substance: TIROFIBAN
     Indication: Hepatocellular carcinoma
     Dates: start: 2023, end: 2023

REACTIONS (2)
  - Acute myocardial infarction [Recovered/Resolved]
  - Blood pressure increased [Recovering/Resolving]

NARRATIVE: CASE EVENT DATE: 20220101
